FAERS Safety Report 21198083 (Version 2)
Quarter: 2022Q3

REPORT INFORMATION
  Report Type: Spontaneous
  Country: DE (occurrence: DE)
  Receive Date: 20220811
  Receipt Date: 20220930
  Transmission Date: 20221026
  Serious: Yes (Other)
  Sender: FDA-Public Use
  Company Number: DE-GLAXOSMITHKLINE-DECH2022EME026683

PATIENT
  Age: 31 Year
  Sex: Female

DRUGS (6)
  1. CIMZIA [Suspect]
     Active Substance: CERTOLIZUMAB PEGOL
     Indication: Product used for unknown indication
     Dosage: 200 MG
     Dates: start: 20211006
  2. IBUPROFEN [Suspect]
     Active Substance: IBUPROFEN
     Indication: Product used for unknown indication
     Dosage: 600 MG, 2 DAYS PER WEEK
     Dates: start: 20100915
  3. ETANERCEPT [Suspect]
     Active Substance: ETANERCEPT
     Indication: Product used for unknown indication
     Dosage: 50 MG, WE
     Dates: start: 20201007, end: 20201228
  4. ETANERCEPT [Suspect]
     Active Substance: ETANERCEPT
     Dosage: 50 MG, WE
     Dates: start: 20201007
  5. HULIO [Suspect]
     Active Substance: ADALIMUMAB-FKJP
     Indication: Product used for unknown indication
     Dosage: 40 MG
     Dates: start: 20200108
  6. ENBREL [Suspect]
     Active Substance: ETANERCEPT
     Indication: Product used for unknown indication
     Dosage: 25 MG
     Dates: start: 20220513

REACTIONS (3)
  - Abortion spontaneous [Recovered/Resolved]
  - Iridocyclitis [Unknown]
  - Maternal exposure during pregnancy [Unknown]

NARRATIVE: CASE EVENT DATE: 20201121
